FAERS Safety Report 5222604-9 (Version None)
Quarter: 2007Q1

REPORT INFORMATION
  Report Type: 
  Country: None (occurrence: None)
  Receive Date: 20070124
  Receipt Date: 20070109
  Transmission Date: 20070707
  Serious: Yes (Other)
  Sender: FDA-Public Use
  Company Number: 2007000073

PATIENT
  Age: 51 Year
  Sex: Female

DRUGS (2)
  1. TARCEVA [Suspect]
     Indication: NON-SMALL CELL LUNG CANCER STAGE IV
     Dosage: 150 MG (QD), ORAL
     Route: 048
     Dates: start: 20050501, end: 20060601
  2. TARCEVA [Suspect]
     Indication: NON-SMALL CELL LUNG CANCER STAGE IV
     Dosage: 150 MG (QD), ORAL
     Route: 048
     Dates: start: 20061101

REACTIONS (1)
  - LEUKAEMIA [None]
